FAERS Safety Report 8257468-2 (Version None)
Quarter: 2012Q2

REPORT INFORMATION
  Report Type: 
  Country: None (occurrence: None)
  Receive Date: 20120403
  Receipt Date: 20090904
  Transmission Date: 20120825
  Serious: Yes (Other)
  Sender: FDA-Public Use
  Company Number: PHHY2009TH070414

PATIENT
  Sex: Female

DRUGS (1)
  1. GLEEVEC [Suspect]
     Dosage: 100MG 4 TABLETS IN THE MORNING

REACTIONS (9)
  - CHOLELITHIASIS [None]
  - MUSCLE SPASMS [None]
  - PALLOR [None]
  - DIZZINESS [None]
  - CARDIAC DISORDER [None]
  - CATARACT [None]
  - FATIGUE [None]
  - PAPILLOEDEMA [None]
  - NASOPHARYNGITIS [None]
